FAERS Safety Report 17749224 (Version 1)
Quarter: 2020Q2

REPORT INFORMATION
  Report Type: Spontaneous
  Country: US (occurrence: US)
  Receive Date: 20200505
  Receipt Date: 20200505
  Transmission Date: 20200714
  Serious: No
  Sender: FDA-Public Use
  Company Number: US-ASTRAZENECA-2020SE49415

PATIENT
  Age: 29258 Day
  Sex: Female

DRUGS (1)
  1. SYMBICORT [Suspect]
     Active Substance: BUDESONIDE\FORMOTEROL FUMARATE DIHYDRATE
     Indication: EMPHYSEMA
     Dosage: TWICE A DAY
     Route: 055

REACTIONS (2)
  - Product administration error [Unknown]
  - Memory impairment [Unknown]

NARRATIVE: CASE EVENT DATE: 20200406
